FAERS Safety Report 4791412-5 (Version None)
Quarter: 2005Q4

REPORT INFORMATION
  Report Type: 
  Country: None (occurrence: None)
  Receive Date: 20051007
  Receipt Date: 20050927
  Transmission Date: 20060501
  Serious: Yes (Other)
  Sender: FDA-Public Use
  Company Number: US-MERCK-0509USA04708

PATIENT
  Age: 53 Year
  Sex: Male
  Weight: 120 kg

DRUGS (10)
  1. VIOXX [Suspect]
     Indication: ARTHRALGIA
     Route: 048
  2. VIOXX [Suspect]
     Indication: BACK PAIN
     Route: 048
  3. METHADONE HYDROCHLORIDE [Concomitant]
     Route: 065
  4. LORA TAB [Concomitant]
     Route: 065
  5. CARDIZEM [Concomitant]
     Route: 065
  6. MONOPRIL [Concomitant]
     Route: 065
  7. IBUPROFEN [Concomitant]
     Route: 065
  8. [THERAPY UNSPECIFIED] [Concomitant]
     Route: 065
  9. VIOXX [Suspect]
     Route: 048
  10. VIOXX [Suspect]
     Indication: PAIN
     Route: 048

REACTIONS (3)
  - CEREBROVASCULAR ACCIDENT [None]
  - CONDITION AGGRAVATED [None]
  - HYPERTENSION [None]
